FAERS Safety Report 5705216-X (Version None)
Quarter: 2008Q2

REPORT INFORMATION
  Report Type: 
  Country: None (occurrence: None)
  Receive Date: 20080410
  Receipt Date: 20080401
  Transmission Date: 20081010
  Serious: Yes (Hospitalization)
  Sender: FDA-Public Use
  Company Number: E2020-02553-SPO-US

PATIENT
  Age: 81 Year
  Sex: Male

DRUGS (5)
  1. ARICEPT [Suspect]
     Indication: DEMENTIA
     Dosage: 10 MG, 1 IN 1 D; ORAL, 730 MG, 73 IN 1 D; ORAL
     Route: 048
     Dates: start: 20070901, end: 20080327
  2. ARICEPT [Suspect]
     Indication: DEMENTIA
     Dosage: 10 MG, 1 IN 1 D; ORAL, 730 MG, 73 IN 1 D; ORAL
     Route: 048
     Dates: start: 20080328, end: 20080328
  3. NAMENDA [Suspect]
     Indication: DRUG USE FOR UNKNOWN INDICATION
     Dosage: 10 MG, 2 IN 1 D; ORAL, 130 MG, 26 IN 1 D; ORAL
     Route: 048
     Dates: end: 20080327
  4. NAMENDA [Suspect]
     Indication: DRUG USE FOR UNKNOWN INDICATION
     Dosage: 10 MG, 2 IN 1 D; ORAL, 130 MG, 26 IN 1 D; ORAL
     Route: 048
     Dates: start: 20080328, end: 20080328
  5. FOLIC ACID [Suspect]
     Indication: DRUG USE FOR UNKNOWN INDICATION
     Dosage: ORAL
     Route: 048
     Dates: end: 20080328

REACTIONS (7)
  - DEPRESSED LEVEL OF CONSCIOUSNESS [None]
  - HYPOXIA [None]
  - OVERDOSE [None]
  - RESPIRATORY DISTRESS [None]
  - SOMNOLENCE [None]
  - SPEECH DISORDER [None]
  - SUICIDE ATTEMPT [None]
